FAERS Safety Report 9247367 (Version 1)
Quarter: 2013Q2

REPORT INFORMATION
  Report Type: Spontaneous
  Country: US (occurrence: US)
  Receive Date: 20130423
  Receipt Date: 20130423
  Transmission Date: 20140414
  Serious: Yes (Other)
  Sender: FDA-Public Use
  Company Number: US-JNJFOC-20130408143

PATIENT
  Sex: Female
  Weight: 78.93 kg

DRUGS (2)
  1. TOPAMAX [Suspect]
     Indication: WEIGHT DECREASED
     Route: 048
  2. TOPAMAX [Suspect]
     Indication: WEIGHT DECREASED
     Route: 048

REACTIONS (3)
  - Cognitive disorder [Recovered/Resolved]
  - Drug ineffective for unapproved indication [Unknown]
  - Off label use [Unknown]
